FAERS Safety Report 5068422-6 (Version None)
Quarter: 2006Q3

REPORT INFORMATION
  Report Type: 
  Country: None (occurrence: None)
  Receive Date: 20060802
  Receipt Date: 20050920
  Transmission Date: 20061208
  Serious: No
  Sender: FDA-Public Use
  Company Number: US-BRISTOL-MYERS SQUIBB COMPANY-13116165

PATIENT
  Sex: Female

DRUGS (6)
  1. COUMADIN [Suspect]
     Indication: HEART RATE INCREASED
     Dosage: INITIAL DOSAGE WAS 2.5 MG DAILY AND INCREASED TO 2.5 MG FOUR DAYS A WEEK AND 5 MG THREE DAYS A WEEK.
     Dates: start: 20050401
  2. AMBIEN [Concomitant]
  3. CARTIA XT [Concomitant]
  4. DIOVAN [Concomitant]
  5. FOLIC ACID [Concomitant]
  6. HYDRALAZINE HCL [Concomitant]

REACTIONS (2)
  - MYALGIA [None]
  - PRURITUS [None]
